FAERS Safety Report 8588263-2 (Version None)
Quarter: 2012Q3

REPORT INFORMATION
  Report Type: 
  Country: None (occurrence: None)
  Receive Date: 20120803
  Receipt Date: 20120803
  Transmission Date: 20120928
  Serious: Yes (Other)
  Sender: FDA-Public Use
  Company Number: None

PATIENT
  Sex: Male
  Weight: 92.5338 kg

DRUGS (1)
  1. BYDUREON [Suspect]
     Indication: TYPE 2 DIABETES MELLITUS
     Dosage: BYDUREON WEEKLY SQ
     Route: 058
     Dates: start: 20120503, end: 20120629

REACTIONS (4)
  - DECREASED INTEREST [None]
  - DECREASED APPETITE [None]
  - NAUSEA [None]
  - LIPASE INCREASED [None]
